FAERS Safety Report 21119263 (Version 1)
Quarter: 2022Q3

REPORT INFORMATION
  Report Type: Spontaneous
  Country: US (occurrence: None)
  Receive Date: 20220721
  Receipt Date: 20220721
  Transmission Date: 20221027
  Serious: Yes (Death)
  Sender: FDA-Public Use
  Company Number: None

PATIENT
  Age: 74 Year
  Sex: Male
  Weight: 182 kg

DRUGS (2)
  1. BARICITINIB [Suspect]
     Active Substance: BARICITINIB
     Indication: COVID-19
     Dosage: 4 MG EVERY DAY OTHER?
     Route: 050
     Dates: start: 20211020, end: 20211029
  2. REMDESIVIR [Suspect]
     Active Substance: REMDESIVIR
     Dosage: 100 MG EVERY DAY IV?
     Route: 042
     Dates: start: 20211018, end: 20211022

REACTIONS (3)
  - Aspartate aminotransferase increased [None]
  - Liver function test increased [None]
  - Nosocomial infection [None]

NARRATIVE: CASE EVENT DATE: 20211029
